FAERS Safety Report 5836852-8 (Version None)
Quarter: 2008Q3

REPORT INFORMATION
  Report Type: 
  Country: None (occurrence: None)
  Receive Date: 20080807
  Receipt Date: 20080729
  Transmission Date: 20090109
  Serious: Yes (Hospitalization)
  Sender: FDA-Public Use
  Company Number: B0531172A

PATIENT
  Age: 43 Year
  Sex: Male

DRUGS (5)
  1. DEROXAT [Suspect]
     Indication: DEPRESSION
     Dosage: 20MG PER DAY
     Route: 048
     Dates: end: 20071224
  2. PEGASYS [Suspect]
     Dosage: 180MCG WEEKLY
     Route: 058
     Dates: start: 20071001
  3. COPEGUS [Suspect]
     Dosage: 200MG TWICE PER DAY
     Route: 048
     Dates: start: 20071001
  4. MANTADIX [Concomitant]
     Dosage: 200MG PER DAY
     Route: 048
  5. IRBESARTAN [Concomitant]
     Dosage: 300MG PER DAY
     Route: 048
     Dates: start: 20061201, end: 20080201

REACTIONS (2)
  - HYPERTENSION [None]
  - INTRACRANIAL HAEMATOMA [None]
